FAERS Safety Report 18962982 (Version 1)
Quarter: 2021Q1

REPORT INFORMATION
  Report Type: Spontaneous
  Country: CH (occurrence: CH)
  Receive Date: 20210303
  Receipt Date: 20210303
  Transmission Date: 20210420
  Serious: Yes (Hospitalization)
  Sender: FDA-Public Use
  Company Number: CH-TEVA-2021-CH-1886391

PATIENT
  Age: 88 Year
  Sex: Female

DRUGS (10)
  1. ZALDIAR [Interacting]
     Active Substance: ACETAMINOPHEN\TRAMADOL HYDROCHLORIDE
     Dosage: AS NECESSARY
     Dates: start: 20210210
  2. ASPIRIN CARDIO [Concomitant]
     Active Substance: ASPIRIN
  3. CALCIMAGON D3 [Concomitant]
     Active Substance: CALCIUM\CHOLECALCIFEROL
  4. PANTOPRAZOLE [Concomitant]
     Active Substance: PANTOPRAZOLE
  5. MOVICOL [Concomitant]
     Active Substance: POLYETHYLENE GLYCOL 3350\POTASSIUM CHLORIDE\SODIUM BICARBONATE\SODIUM CHLORIDE
  6. PARACETAMOL [Concomitant]
     Active Substance: ACETAMINOPHEN
  7. COTENOLOL MEPHA NEO [Suspect]
     Active Substance: ATENOLOL\CHLORTHALIDONE
     Dosage: INGREDIENT (ATENOLOL): 50MG; INGREDIENT (CHLORTALIDONE): 12.5MG
     Route: 048
     Dates: end: 20210207
  8. TILUR [Interacting]
     Active Substance: ACEMETACIN
     Route: 048
  9. ZALDIAR [Interacting]
     Active Substance: ACETAMINOPHEN\TRAMADOL HYDROCHLORIDE
     Dosage: INGREDIENT (PARACETAMOL): 325MG; INGREDIENT (TRAMADOL HYDROCHLORIDE): 37.5MG;
     Route: 048
     Dates: end: 20210207
  10. ZANIDIP [Concomitant]
     Active Substance: LERCANIDIPINE HYDROCHLORIDE

REACTIONS (4)
  - Fall [Recovered/Resolved]
  - Hyponatraemia [Recovering/Resolving]
  - Drug interaction [Recovering/Resolving]
  - Pelvic fracture [Recovering/Resolving]

NARRATIVE: CASE EVENT DATE: 2021
